FAERS Safety Report 10536815 (Version 2)
Quarter: 2015Q4

REPORT INFORMATION
  Report Type: Spontaneous
  Country: US (occurrence: US)
  Receive Date: 20141022
  Receipt Date: 20151014
  Transmission Date: 20160304
  Serious: No
  Sender: FDA-Public Use
  Company Number: US-RECKITT BENCKISER PHARMACEUTICAL, INC-RB-70380-2014

PATIENT
  Sex: Male

DRUGS (3)
  1. SUBOXONE [Suspect]
     Active Substance: BUPRENORPHINE HYDROCHLORIDE\NALOXONE HYDROCHLORIDE
     Indication: DRUG DEPENDENCE
     Dosage: 4 MG
     Route: 065
  2. BUPRENORPHINE/NALOXONE GENERIC [Suspect]
     Active Substance: BUPRENORPHINE\NALOXONE
     Indication: DRUG DEPENDENCE
     Dosage: UNK
     Route: 065
  3. BUPRENORPHINE GENERIC TAB [Suspect]
     Active Substance: BUPRENORPHINE
     Indication: DRUG DEPENDENCE
     Dosage: 8 MG, BID
     Route: 060
     Dates: start: 20140701

REACTIONS (5)
  - Oral pain [Recovered/Resolved]
  - Glossodynia [Recovered/Resolved]
  - Oral allergy syndrome [Recovered/Resolved]
  - Hypersensitivity [Recovered/Resolved]
  - Mouth swelling [Recovered/Resolved]
